FAERS Safety Report 9880127 (Version 2)
Quarter: 2014Q2

REPORT INFORMATION
  Report Type: Spontaneous
  Country: GB (occurrence: GB)
  Receive Date: 20140207
  Receipt Date: 20140515
  Transmission Date: 20141212
  Serious: Yes (Other)
  Sender: FDA-Public Use
  Company Number: GB-009507513-1401GBR014520

PATIENT
  Age: 33 Year
  Sex: Female
  Weight: 94 kg

DRUGS (2)
  1. NEXPLANON [Suspect]
     Indication: CONTRACEPTION
     Dosage: UNK, LEFT ARM
     Route: 059
     Dates: start: 20130909
  2. IMPLANON [Concomitant]
     Dosage: UNK
     Route: 059
     Dates: end: 2013

REACTIONS (6)
  - Pregnancy with implant contraceptive [Recovered/Resolved]
  - Abortion spontaneous [Unknown]
  - Complication of device insertion [Unknown]
  - Instillation site discomfort [Unknown]
  - Pain [Unknown]
  - Implant site discharge [Unknown]
